FAERS Safety Report 13307347 (Version 1)
Quarter: 2017Q1

REPORT INFORMATION
  Report Type: Spontaneous
  Country: US (occurrence: US)
  Receive Date: 20170308
  Receipt Date: 20170308
  Transmission Date: 20170428
  Serious: No
  Sender: FDA-Public Use
  Company Number: US-PERRIGO-16US015075

PATIENT
  Age: 73 Year
  Sex: Male
  Weight: 78.5 kg

DRUGS (5)
  1. ATORVASTATIN [Concomitant]
     Active Substance: ATORVASTATIN
     Indication: BLOOD CHOLESTEROL INCREASED
     Dosage: UNK
     Route: 065
  2. NAPROXEN SODIUM. [Suspect]
     Active Substance: NAPROXEN SODIUM
     Dosage: 220 MG, EVERY 8 HOURS
     Route: 048
     Dates: start: 20160409
  3. NAPROXEN SODIUM. [Suspect]
     Active Substance: NAPROXEN SODIUM
     Indication: SCIATICA
     Dosage: 440 MG, SINGLE
     Route: 048
     Dates: start: 20160408, end: 20160408
  4. DILTIAZEM. [Concomitant]
     Active Substance: DILTIAZEM
     Indication: ATRIAL FIBRILLATION
     Dosage: UNK
     Route: 065
  5. DILTIAZEM. [Concomitant]
     Active Substance: DILTIAZEM
     Indication: BLOOD PRESSURE ABNORMAL

REACTIONS (1)
  - Faeces discoloured [Not Recovered/Not Resolved]

NARRATIVE: CASE EVENT DATE: 20160410
